FAERS Safety Report 12922887 (Version 3)
Quarter: 2017Q1

REPORT INFORMATION
  Report Type: Spontaneous
  Country: US (occurrence: US)
  Receive Date: 20161109
  Receipt Date: 20170208
  Transmission Date: 20170428
  Serious: No
  Sender: FDA-Public Use
  Company Number: US-009507513-1610USA011495

PATIENT
  Age: 32 Year
  Sex: Female

DRUGS (2)
  1. FOLLISTIM AQ [Suspect]
     Active Substance: FOLLITROPIN
     Indication: INFERTILITY
     Dosage: UNK UNK, QD
     Route: 058
     Dates: start: 20161019
  2. FOLLITROPIN BETA [Suspect]
     Active Substance: FOLLITROPIN
     Indication: INFERTILITY
     Dosage: UNK
     Route: 058
     Dates: start: 20161019

REACTIONS (4)
  - Occupational exposure to product [Unknown]
  - Injury associated with device [Unknown]
  - Needle issue [Unknown]
  - Accidental exposure to product [Unknown]

NARRATIVE: CASE EVENT DATE: 20161019
